FAERS Safety Report 22197614 (Version 2)
Quarter: 2023Q2

REPORT INFORMATION
  Report Type: Report from Study
  Country: CN (occurrence: CN)
  Receive Date: 20230411
  Receipt Date: 20230502
  Transmission Date: 20230722
  Serious: Yes (Hospitalization)
  Sender: FDA-Public Use
  Company Number: CN-JNJFOC-20230411797

PATIENT
  Age: 62 Year
  Sex: Female
  Weight: 65 kg

DRUGS (13)
  1. DARATUMUMAB [Suspect]
     Active Substance: DARATUMUMAB
     Indication: Plasma cell myeloma
     Route: 058
     Dates: start: 20230309, end: 20230323
  2. ZOPICLONE [Concomitant]
     Active Substance: ZOPICLONE
     Indication: Insomnia
     Route: 048
     Dates: start: 20200901
  3. ZOPICLONE [Concomitant]
     Active Substance: ZOPICLONE
     Route: 048
     Dates: start: 20230320, end: 20230322
  4. ROXITHROMYCIN [Concomitant]
     Active Substance: ROXITHROMYCIN
     Indication: Pharyngitis
     Route: 048
     Dates: start: 20230318, end: 20230320
  5. ROXITHROMYCIN [Concomitant]
     Active Substance: ROXITHROMYCIN
     Route: 048
     Dates: start: 20230326, end: 20230326
  6. LORAZEPAM [Concomitant]
     Active Substance: LORAZEPAM
     Indication: Insomnia
     Route: 048
     Dates: start: 20230320, end: 20230322
  7. PREDNISONE ACETATE [Concomitant]
     Active Substance: PREDNISONE ACETATE
     Indication: Pharyngitis
     Route: 048
     Dates: start: 20230321, end: 20230321
  8. PREDNISONE ACETATE [Concomitant]
     Active Substance: PREDNISONE ACETATE
     Indication: Dysphagia
     Route: 048
     Dates: start: 20230327, end: 20230329
  9. MONTELUKAST SODIUM [Concomitant]
     Active Substance: MONTELUKAST SODIUM
     Indication: Anaphylactic reaction
     Route: 048
     Dates: start: 20230324, end: 20230324
  10. GABAPENTIN [Concomitant]
     Active Substance: GABAPENTIN
     Indication: Pharyngitis
     Route: 048
     Dates: start: 20230325, end: 20230325
  11. DICLOFENAC SODIUM [Concomitant]
     Active Substance: DICLOFENAC SODIUM
     Indication: Pharyngitis
     Route: 048
     Dates: start: 20230325, end: 20230326
  12. MOXIFLOXACIN HYDROCHLORIDE [Concomitant]
     Active Substance: MOXIFLOXACIN HYDROCHLORIDE
     Indication: Pharyngitis
     Route: 048
     Dates: start: 20230326, end: 20230329
  13. FLUCONAZOLE [Concomitant]
     Active Substance: FLUCONAZOLE
     Indication: Pharyngitis
     Route: 048
     Dates: start: 20230327, end: 20230329

REACTIONS (1)
  - Muscular weakness [Recovered/Resolved]

NARRATIVE: CASE EVENT DATE: 20230401
